FAERS Safety Report 4503093-6 (Version None)
Quarter: 2004Q4

REPORT INFORMATION
  Report Type: 
  Country: None (occurrence: None)
  Receive Date: 20041117
  Receipt Date: 20040813
  Transmission Date: 20050328
  Serious: Yes (Life-Threatening)
  Sender: FDA-Public Use
  Company Number: BE-ROCHE-377581

PATIENT
  Age: 55 Year
  Sex: Male

DRUGS (3)
  1. TICLID [Suspect]
     Route: 048
     Dates: start: 19980815, end: 20040802
  2. CANDESARTAN [Concomitant]
  3. LANITOP [Concomitant]
     Indication: DRUG USE FOR UNKNOWN INDICATION
     Route: 065
     Dates: start: 20040115, end: 20040515

REACTIONS (8)
  - ASCITES [None]
  - DYSPNOEA [None]
  - LUPUS-LIKE SYNDROME [None]
  - OEDEMA PERIPHERAL [None]
  - PERICARDITIS CONSTRICTIVE [None]
  - PERICARDITIS LUPUS [None]
  - PLEURISY [None]
  - POLYSEROSITIS [None]
